FAERS Safety Report 6647608-0 (Version None)
Quarter: 2010Q1

REPORT INFORMATION
  Report Type: 
  Country: None (occurrence: None)
  Receive Date: 20100323
  Receipt Date: 20100323
  Transmission Date: 20100710
  Serious: Yes (Other)
  Sender: FDA-Public Use
  Company Number: None

PATIENT
  Sex: Male
  Weight: 81.6475 kg

DRUGS (1)
  1. AMOXICILLIN AND CLAVULANATE POTASSIUM [Suspect]
     Indication: BRONCHITIS
     Dosage: 1 TABLET TWICE DAILY PO, 1 DOSE
     Route: 048
     Dates: start: 20100208, end: 20100208

REACTIONS (6)
  - ABDOMINAL DISTENSION [None]
  - ABDOMINAL PAIN [None]
  - CHILLS [None]
  - INFLUENZA LIKE ILLNESS [None]
  - JAUNDICE [None]
  - PYREXIA [None]
